FAERS Safety Report 12993209 (Version 1)
Quarter: 2016Q4

REPORT INFORMATION
  Report Type: Spontaneous
  Country: IN (occurrence: IN)
  Receive Date: 20161202
  Receipt Date: 20161202
  Transmission Date: 20170207
  Serious: Yes (Hospitalization, Other)
  Sender: FDA-Public Use
  Company Number: IN-ZYDUS-012818

PATIENT
  Age: 20 Year
  Sex: Female

DRUGS (2)
  1. LEVETIRACETAM. [Concomitant]
     Active Substance: LEVETIRACETAM
     Indication: MIGRAINE PROPHYLAXIS
     Route: 065
  2. TOPIRAMATE. [Suspect]
     Active Substance: TOPIRAMATE
     Indication: MIGRAINE PROPHYLAXIS
     Route: 065

REACTIONS (12)
  - Angle closure glaucoma [Unknown]
  - Photophobia [Unknown]
  - Anterior chamber inflammation [Unknown]
  - Choroidal effusion [Recovered/Resolved]
  - Intraocular pressure test abnormal [Recovered/Resolved]
  - Conjunctival oedema [Unknown]
  - Iris adhesions [Unknown]
  - Headache [Unknown]
  - Vomiting [Unknown]
  - Vision blurred [Recovering/Resolving]
  - Corneal oedema [Unknown]
  - Acute myopia [Recovering/Resolving]
